FAERS Safety Report 21745359 (Version 13)
Quarter: 2024Q4

REPORT INFORMATION
  Report Type: Report from Study
  Country: CN (occurrence: CN)
  Receive Date: 20221219
  Receipt Date: 20241226
  Transmission Date: 20250115
  Serious: Yes (Other)
  Sender: ROCHE
  Company Number: CN-ROCHE-3244510

PATIENT
  Age: 54 Year
  Sex: Male
  Weight: 60.0 kg

DRUGS (2)
  1. AVASTIN [Suspect]
     Active Substance: BEVACIZUMAB
     Indication: Non-small cell lung cancer
     Route: 041
     Dates: start: 20161205, end: 20220922
  2. AVASTIN [Suspect]
     Active Substance: BEVACIZUMAB
     Route: 041

REACTIONS (18)
  - COVID-19 pneumonia [Recovering/Resolving]
  - Pneumonitis [Not Recovered/Not Resolved]
  - Sinusitis [Not Recovered/Not Resolved]
  - Coronavirus test positive [Unknown]
  - Pulmonary mass [Not Recovered/Not Resolved]
  - Lymphadenopathy [Not Recovered/Not Resolved]
  - Peritoneal disorder [Not Recovered/Not Resolved]
  - Ascites [Not Recovered/Not Resolved]
  - Pelvic fluid collection [Not Recovered/Not Resolved]
  - Nodule [Not Recovered/Not Resolved]
  - Pleural effusion [Not Recovered/Not Resolved]
  - Platelet count decreased [Unknown]
  - Hepatic function abnormal [Unknown]
  - White blood cell count decreased [Unknown]
  - Liver function test increased [Recovered/Resolved]
  - Renal function test abnormal [Recovered/Resolved]
  - Liver function test increased [Recovered/Resolved]
  - Renal function test abnormal [Recovered/Resolved]

NARRATIVE: CASE EVENT DATE: 20221213
